FAERS Safety Report 12104040 (Version 1)
Quarter: 2016Q1

REPORT INFORMATION
  Report Type: Other
  Country: MX (occurrence: MX)
  Receive Date: 20160223
  Receipt Date: 20160223
  Transmission Date: 20160526
  Serious: Yes (Other)
  Sender: FDA-Public Use
  Company Number: MX-SHIRE-MX201600460

PATIENT
  Age: 5 Year
  Sex: Male
  Weight: 20.6 kg

DRUGS (1)
  1. ELAPRASE [Suspect]
     Active Substance: IDURSULFASE
     Indication: MUCOPOLYSACCHARIDOSIS II
     Dosage: 12 MG(2 VIALS), 1X/WEEK
     Route: 041

REACTIONS (2)
  - Gastroenteritis [Recovered/Resolved]
  - Otitis media [Recovered/Resolved]

NARRATIVE: CASE EVENT DATE: 20151228
